FAERS Safety Report 6149122-8 (Version None)
Quarter: 2009Q2

REPORT INFORMATION
  Report Type: 
  Country: None (occurrence: None)
  Receive Date: 20090407
  Receipt Date: 20090325
  Transmission Date: 20091009
  Serious: Yes (Death)
  Sender: FDA-Public Use
  Company Number: POMP-1000528

PATIENT
  Age: 6 Month
  Sex: Female
  Weight: 7.9 kg

DRUGS (7)
  1. MYOZYME [Suspect]
     Indication: GLYCOGEN STORAGE DISEASE TYPE II
     Dosage: 20 MG/KG, Q2W, INTRAVENOUS
     Route: 042
     Dates: start: 20090114, end: 20090227
  2. PERFALGAN (PARACETAMOL) [Concomitant]
  3. LASIX [Concomitant]
  4. FORTUM (CEFTAZIDIME) [Concomitant]
  5. VANCOMYCIN [Concomitant]
  6. NUBAIN [Concomitant]
  7. MIDAZOLAM HCL [Concomitant]

REACTIONS (6)
  - CARDIAC FAILURE [None]
  - DRUG INEFFECTIVE [None]
  - GENERAL PHYSICAL HEALTH DETERIORATION [None]
  - LUNG INFECTION [None]
  - RESPIRATORY FAILURE [None]
  - THERAPEUTIC RESPONSE DECREASED [None]
